FAERS Safety Report 17757776 (Version 16)
Quarter: 2021Q4

REPORT INFORMATION
  Report Type: Report from Study
  Country: CA (occurrence: CA)
  Receive Date: 20200507
  Receipt Date: 20211204
  Transmission Date: 20220304
  Serious: Yes (Hospitalization, Disabling, Congenital Anomaly, Other)
  Sender: FDA-Public Use
  Company Number: NVSC2020CA122648

PATIENT
  Sex: Female
  Weight: 116 kg

DRUGS (6)
  1. KESIMPTA [Suspect]
     Active Substance: OFATUMUMAB
     Indication: Relapsing multiple sclerosis
     Dosage: 20 MG, Q4W
     Route: 058
     Dates: start: 20190925, end: 20200411
  2. KESIMPTA [Suspect]
     Active Substance: OFATUMUMAB
     Dosage: UNK
     Route: 058
     Dates: start: 20210820
  3. ADVIL [Concomitant]
     Active Substance: IBUPROFEN
     Indication: Abdominal pain
     Dosage: UNK
     Route: 065
     Dates: start: 20200420, end: 20200423
  4. ADVIL [Concomitant]
     Active Substance: IBUPROFEN
     Indication: Migraine
  5. TYLENOL [Concomitant]
     Active Substance: ACETAMINOPHEN
     Indication: Migraine
     Dosage: UNK
     Route: 065
     Dates: start: 20200423
  6. VITAMIN C [Concomitant]
     Active Substance: ASCORBIC ACID
     Indication: Vitamin supplementation
     Dosage: UNK
     Route: 065
     Dates: start: 20180418, end: 20200420

REACTIONS (5)
  - Abscess [Recovered/Resolved]
  - Appendicitis perforated [Recovered/Resolved]
  - Mesenteric vein thrombosis [Recovered/Resolved]
  - Appendicitis [Unknown]
  - Thrombosis [Unknown]

NARRATIVE: CASE EVENT DATE: 20200428
